FAERS Safety Report 14995040 (Version 1)
Quarter: 2018Q2

REPORT INFORMATION
  Report Type: Spontaneous
  Country: US (occurrence: US)
  Receive Date: 20180611
  Receipt Date: 20180611
  Transmission Date: 20180711
  Serious: Yes (Hospitalization, Other)
  Sender: FDA-Public Use
  Company Number: US-MYLANLABS-2017M1079851

PATIENT
  Age: 44 Year
  Sex: Male

DRUGS (9)
  1. CLOZAPINE. [Interacting]
     Active Substance: CLOZAPINE
     Dosage: 75 MG, PM
     Route: 065
  2. RISPERIDONE. [Interacting]
     Active Substance: RISPERIDONE
     Indication: SCHIZOAFFECTIVE DISORDER
     Dosage: UNK
     Route: 048
  3. RISPERIDONE. [Interacting]
     Active Substance: RISPERIDONE
     Dosage: UNK
     Route: 048
  4. RISPERIDONE. [Interacting]
     Active Substance: RISPERIDONE
     Dosage: 50 MG, UNK
     Route: 065
  5. RISPERIDONE. [Interacting]
     Active Substance: RISPERIDONE
     Dosage: UNK UNK, BIWEEKLY
  6. CLOZAPINE. [Suspect]
     Active Substance: CLOZAPINE
     Indication: SCHIZOAFFECTIVE DISORDER
     Dosage: UNK
  7. CLOZAPINE. [Interacting]
     Active Substance: CLOZAPINE
     Dosage: 25 MG, UNK
     Route: 065
  8. RISPERIDONE. [Interacting]
     Active Substance: RISPERIDONE
     Dosage: 2 MG, UNK
     Route: 048
  9. CLOZAPINE. [Interacting]
     Active Substance: CLOZAPINE
     Dosage: 125 MG, AM
     Route: 065

REACTIONS (5)
  - Extrapyramidal disorder [Recovered/Resolved]
  - Physical examination abnormal [Not Recovered/Not Resolved]
  - Drug interaction [Unknown]
  - Dystonia [Recovered/Resolved]
  - Tremor [Unknown]
